FAERS Safety Report 9706195 (Version 2)
Quarter: 2013Q4

REPORT INFORMATION
  Report Type: Report from Study
  Country: RU (occurrence: RU)
  Receive Date: 20131124
  Receipt Date: 20131204
  Transmission Date: 20140711
  Serious: Yes (Hospitalization)
  Sender: FDA-Public Use
  Company Number: RU-BRISTOL-MYERS SQUIBB COMPANY-19809789

PATIENT
  Age: 65 Year
  Sex: Male

DRUGS (6)
  1. CARBOPLATIN [Suspect]
     Indication: NON-SMALL CELL LUNG CANCER
     Route: 042
     Dates: start: 20131008, end: 20131028
  2. PACLITAXEL [Suspect]
     Indication: NON-SMALL CELL LUNG CANCER
     Route: 042
     Dates: start: 20131008, end: 20131028
  3. RENITEC [Concomitant]
     Dates: start: 20130924
  4. ACC [Concomitant]
     Dates: start: 20130924
  5. VARFINE [Concomitant]
     Dates: start: 20130924
  6. THROMBO ASS [Concomitant]

REACTIONS (1)
  - Phlebitis [Recovered/Resolved]
